FAERS Safety Report 6431755-2 (Version None)
Quarter: 2009Q4

REPORT INFORMATION
  Report Type: 
  Country: None (occurrence: None)
  Receive Date: 20091104
  Receipt Date: 20091020
  Transmission Date: 20100525
  Serious: Yes (Hospitalization)
  Sender: FDA-Public Use
  Company Number: B0600095A

PATIENT
  Age: 49 Year
  Sex: Male

DRUGS (1)
  1. ALBENDAZOLE (FORMULATION UNKNOWN) (ALBENDAZOLE) (GENERIC) [Suspect]
     Indication: ECHINOCOCCIASIS
     Dosage: 800 MG/PER DAY/ORAL
     Route: 048

REACTIONS (7)
  - AGRANULOCYTOSIS [None]
  - APLASTIC ANAEMIA [None]
  - ASCITES [None]
  - MASS [None]
  - PURULENCE [None]
  - PYREXIA [None]
  - SPLENOMEGALY [None]
